FAERS Safety Report 19156859 (Version 1)
Quarter: 2021Q2

REPORT INFORMATION
  Report Type: Spontaneous
  Country: US (occurrence: US)
  Receive Date: 20210420
  Receipt Date: 20210420
  Transmission Date: 20210717
  Serious: No
  Sender: FDA-Public Use
  Company Number: NVSC2021US083068

PATIENT
  Sex: Female

DRUGS (1)
  1. KESIMPTA [Suspect]
     Active Substance: OFATUMUMAB
     Indication: HERPES ZOSTER
     Dosage: 0.04 ML, (20MG/.4ML), ONCE A WEEK FOR THE FIRST TWO WEEKS.
     Route: 065

REACTIONS (1)
  - Herpes zoster [Unknown]
